FAERS Safety Report 9093807 (Version 1)
Quarter: 2013Q1

REPORT INFORMATION
  Report Type: Report from Study
  Country: GB (occurrence: GB)
  Receive Date: 20130201
  Receipt Date: 20130201
  Transmission Date: 20140127
  Serious: Yes (Hospitalization)
  Sender: FDA-Public Use
  Company Number: GB-ASTRAZENECA-2013SE05489

PATIENT
  Age: 71 Year
  Sex: Male

DRUGS (4)
  1. ESOMEPRAZOLE [Suspect]
     Indication: BARRETT^S OESOPHAGUS
     Route: 048
     Dates: start: 20081114, end: 20121205
  2. CANDESARTAN [Suspect]
     Route: 048
  3. SIMVASTATIN [Concomitant]
  4. METFORMIN [Concomitant]

REACTIONS (1)
  - Inappropriate antidiuretic hormone secretion [Recovered/Resolved with Sequelae]
